FAERS Safety Report 11883099 (Version 1)
Quarter: 2015Q4

REPORT INFORMATION
  Report Type: Report from Study
  Country: BR (occurrence: BR)
  Receive Date: 20151231
  Receipt Date: 20151231
  Transmission Date: 20160305
  Serious: Yes (Other)
  Sender: FDA-Public Use
  Company Number: BR-GLAXOSMITHKLINE-BR2015GSK183362

PATIENT
  Age: 74 Year
  Sex: Female

DRUGS (1)
  1. FLUTICASONE FUROATE + VILANTEROL TRIFENATATE [Suspect]
     Active Substance: FLUTICASONE FUROATE\VILANTEROL TRIFENATATE
     Indication: PRODUCT USED FOR UNKNOWN INDICATION
     Dosage: UNK (100/25 MCG)
     Dates: start: 201411

REACTIONS (2)
  - Breast cancer [Unknown]
  - Cancer surgery [Unknown]

NARRATIVE: CASE EVENT DATE: 201501
